FAERS Safety Report 8443467-4 (Version None)
Quarter: 2012Q2

REPORT INFORMATION
  Report Type: 
  Country: None (occurrence: None)
  Receive Date: 20120618
  Receipt Date: 20120606
  Transmission Date: 20120825
  Serious: Yes (Hospitalization)
  Sender: FDA-Public Use
  Company Number: US-JNJFOC-20120603441

PATIENT
  Sex: Male

DRUGS (4)
  1. DURAGESIC-100 [Suspect]
     Indication: PAIN
     Route: 062
  2. DURAGESIC-100 [Suspect]
     Route: 062
     Dates: start: 20120101
  3. FENTANYL-100 [Suspect]
     Indication: PAIN
     Route: 062
  4. DURAGESIC-100 [Suspect]
     Route: 062
     Dates: start: 20090101, end: 20120101

REACTIONS (7)
  - ANAEMIA [None]
  - HYPERTENSION [None]
  - CORONARY ARTERY DISEASE [None]
  - STENT MALFUNCTION [None]
  - THYROID DISORDER [None]
  - PROSTATOMEGALY [None]
  - DRUG INEFFECTIVE [None]
